FAERS Safety Report 13065032 (Version 1)
Quarter: 2016Q4

REPORT INFORMATION
  Report Type: Spontaneous
  Country: BR (occurrence: BR)
  Receive Date: 20161227
  Receipt Date: 20161227
  Transmission Date: 20170207
  Serious: Yes (Hospitalization, Other)
  Sender: FDA-Public Use
  Company Number: BR-SA-2016SA233412

PATIENT
  Age: 19 Year
  Sex: Female

DRUGS (1)
  1. CEREZYME [Suspect]
     Active Substance: IMIGLUCERASE
     Route: 041

REACTIONS (6)
  - Pain in extremity [Unknown]
  - Exposure during pregnancy [Unknown]
  - Bone disorder [Unknown]
  - Pathological fracture [Unknown]
  - Bone pain [Unknown]
  - Osteonecrosis [Unknown]
